FAERS Safety Report 17825029 (Version 4)
Quarter: 2021Q1

REPORT INFORMATION
  Report Type: Spontaneous
  Country: US (occurrence: US)
  Receive Date: 20200526
  Receipt Date: 20210324
  Transmission Date: 20210419
  Serious: No
  Sender: FDA-Public Use
  Company Number: US-SA-2020SA131494

PATIENT
  Age: 13 Year
  Sex: Male

DRUGS (1)
  1. DUPIXENT [Suspect]
     Active Substance: DUPILUMAB
     Indication: DERMATITIS ATOPIC
     Dosage: 300 MG, QOW
     Route: 058
     Dates: start: 20200317

REACTIONS (4)
  - Unevaluable event [Unknown]
  - Product dose omission issue [Unknown]
  - Lip injury [Unknown]
  - Alopecia [Unknown]

NARRATIVE: CASE EVENT DATE: 2020
